FAERS Safety Report 17054068 (Version 2)
Quarter: 2019Q4

REPORT INFORMATION
  Report Type: Spontaneous
  Country: US (occurrence: US)
  Receive Date: 20191120
  Receipt Date: 20191122
  Transmission Date: 20200122
  Serious: No
  Sender: FDA-Public Use
  Company Number: US-PFIZER INC-2019500468

PATIENT
  Age: 61 Year
  Sex: Female
  Weight: 117.91 kg

DRUGS (1)
  1. IBRANCE [Suspect]
     Active Substance: PALBOCICLIB
     Dosage: 125 MG, UNK
     Dates: start: 20191110

REACTIONS (2)
  - Stomatitis [Not Recovered/Not Resolved]
  - Nausea [Unknown]
